FAERS Safety Report 4563748-4 (Version None)
Quarter: 2005Q1

REPORT INFORMATION
  Report Type: 
  Country: None (occurrence: None)
  Receive Date: 20050128
  Receipt Date: 20040928
  Transmission Date: 20050727
  Serious: Yes (Hospitalization)
  Sender: FDA-Public Use
  Company Number: 200413658FR

PATIENT
  Age: 61 Year
  Sex: Male

DRUGS (7)
  1. TARGOCID [Suspect]
     Indication: ENDOCARDITIS
     Route: 042
     Dates: start: 20040618, end: 20040701
  2. RIFADIN [Suspect]
     Indication: AORTIC VALVE DISEASE
     Route: 042
     Dates: end: 20040630
  3. RIFADIN [Suspect]
     Indication: ENDOCARDITIS
     Route: 042
     Dates: end: 20040630
  4. AUGMENTIN [Concomitant]
     Dates: start: 20040101, end: 20040101
  5. GENTAMICIN [Concomitant]
     Indication: ENDOCARDITIS
     Dates: start: 20040501, end: 20040612
  6. VANCOMYCIN [Concomitant]
     Indication: AORTIC VALVE DISEASE
     Route: 042
     Dates: start: 20040601, end: 20040618
  7. VANCOMYCIN [Concomitant]
     Indication: ENDOCARDITIS
     Route: 042
     Dates: start: 20040601, end: 20040618

REACTIONS (7)
  - ANAEMIA [None]
  - DRUG HYPERSENSITIVITY [None]
  - EOSINOPHILIA [None]
  - LYMPHADENOPATHY [None]
  - PYREXIA [None]
  - RED BLOOD CELL SEDIMENTATION RATE INCREASED [None]
  - RENAL FAILURE [None]
